FAERS Safety Report 4407952-4 (Version None)
Quarter: 2004Q3

REPORT INFORMATION
  Report Type: 
  Country: None (occurrence: None)
  Receive Date: 20040716
  Receipt Date: 20040706
  Transmission Date: 20050211
  Serious: Yes (Life-Threatening, Hospitalization)
  Sender: FDA-Public Use
  Company Number: 2004222818GB

PATIENT
  Age: 61 Year
  Sex: Male

DRUGS (9)
  1. CELEBREX [Suspect]
     Indication: RHEUMATOID ARTHRITIS
     Dosage: 200 MG, QD, ORAL
     Route: 048
     Dates: end: 20040621
  2. LISINOPRIL [Suspect]
     Indication: BLOOD PRESSURE INCREASED
     Dosage: 10 MG, QD, ORAL
     Route: 048
     Dates: end: 20040621
  3. ALBUTEROL SULFATE [Concomitant]
  4. PARACETAMOL [Concomitant]
  5. ISOSORBIDE MONONITRATE [Concomitant]
  6. ESOMEPRAZOLE [Concomitant]
  7. DILTIAZEM [Concomitant]
  8. ASPIRIN [Concomitant]
  9. ATORVASTATIN CALCIUM [Concomitant]

REACTIONS (1)
  - BLOOD POTASSIUM INCREASED [None]
